FAERS Safety Report 10283061 (Version 4)
Quarter: 2015Q1

REPORT INFORMATION
  Report Type: Report from Study
  Country: JP (occurrence: JP)
  Receive Date: 20140708
  Receipt Date: 20150103
  Transmission Date: 20150720
  Serious: Yes (Other)
  Sender: FDA-Public Use
  Company Number: JP-BRISTOL-MYERS SQUIBB COMPANY-21130315

PATIENT
  Age: 81 Year
  Sex: Female

DRUGS (1)
  1. SAXAGLIPTIN [Suspect]
     Active Substance: SAXAGLIPTIN
     Indication: PRODUCT USED FOR UNKNOWN INDICATION
     Dosage: 5 MG, UNK
     Route: 048
     Dates: start: 20140311

REACTIONS (2)
  - Nasopharyngitis [Recovered/Resolved]
  - Compression fracture [Recovered/Resolved]

NARRATIVE: CASE EVENT DATE: 20140423
